FAERS Safety Report 11185671 (Version 3)
Quarter: 2016Q4

REPORT INFORMATION
  Report Type: Spontaneous
  Country: PT (occurrence: PT)
  Receive Date: 20150612
  Receipt Date: 20161202
  Transmission Date: 20170206
  Serious: Yes (Other)
  Sender: FDA-Public Use
  Company Number: PT-GILEAD-2015-0157143

PATIENT
  Age: 55 Year
  Sex: Male

DRUGS (16)
  1. HUMULIN N [Concomitant]
     Active Substance: INSULIN HUMAN
     Route: 058
  2. HUMULIN N [Concomitant]
     Active Substance: INSULIN HUMAN
     Indication: DIABETES MELLITUS
     Dosage: UNK UNKNOWN, UNK
     Route: 058
  3. METADONA [Concomitant]
     Active Substance: METHADONE HYDROCHLORIDE
     Route: 048
  4. STAGID [Concomitant]
     Active Substance: METFORMIN PAMOATE
     Route: 048
  5. STAGID [Concomitant]
     Active Substance: METFORMIN PAMOATE
     Route: 048
  6. OMEPRAZOL [Concomitant]
     Active Substance: OMEPRAZOLE
     Indication: PROPHYLAXIS
     Dosage: DOSAGEM DA FORMA FARMAC?UTICA - 40MG.
     Route: 048
  7. METADONA [Concomitant]
     Active Substance: METHADONE HYDROCHLORIDE
     Indication: EX-DRUG ABUSER
     Dosage: 25 ML, QD
     Route: 048
  8. OMEPRAZOL                          /00661201/ [Concomitant]
     Active Substance: OMEPRAZOLE
     Indication: PROPHYLAXIS
     Dosage: 40 MG, QD
     Route: 048
  9. STAGID [Concomitant]
     Active Substance: METFORMIN PAMOATE
     Indication: DIABETES MELLITUS
     Dosage: UNK UNKNOWN, UNK
     Route: 048
  10. METFORMIN [Concomitant]
     Active Substance: METFORMIN HYDROCHLORIDE
     Indication: DIABETES MELLITUS
     Dosage: 700 MG, UNK
     Route: 048
  11. HARVONI [Suspect]
     Active Substance: LEDIPASVIR\SOFOSBUVIR
     Indication: HEPATITIS C
     Dosage: VALIDADE: 30-11-2016
     Route: 048
     Dates: start: 20150325
  12. METADONA [Concomitant]
     Active Substance: METHADONE HYDROCHLORIDE
     Route: 048
  13. STAGID [Concomitant]
     Active Substance: METFORMIN PAMOATE
     Route: 048
  14. METADONA [Concomitant]
     Active Substance: METHADONE HYDROCHLORIDE
     Route: 048
  15. HUMULIN N [Concomitant]
     Active Substance: INSULIN HUMAN
     Route: 058
  16. HUMULIN N [Concomitant]
     Active Substance: INSULIN HUMAN
     Route: 058

REACTIONS (3)
  - Blood alkaline phosphatase increased [Recovered/Resolved]
  - Eosinophilia [Recovered/Resolved]
  - Lymphocytosis [Recovered/Resolved]

NARRATIVE: CASE EVENT DATE: 20150430
